FAERS Safety Report 8365277-9 (Version None)
Quarter: 2012Q1

REPORT INFORMATION
  Report Type: 
  Country: None (occurrence: None)
  Receive Date: 20120323
  Receipt Date: 20110411
  Transmission Date: 20120608
  Serious: Yes (Other)
  Sender: FDA-Public Use
  Company Number: 163-21880-11041267

PATIENT
  Age: 78 Year
  Sex: Male

DRUGS (10)
  1. LASIX [Concomitant]
  2. LISINOPRIL [Concomitant]
  3. REVLIMID [Suspect]
     Indication: MYELODYSPLASTIC SYNDROME
     Dosage: 10; 5 MG, D1-21, PO
     Route: 048
     Dates: start: 20100101
  4. REVLIMID [Suspect]
     Indication: MYELODYSPLASTIC SYNDROME
     Dosage: 10; 5 MG, D1-21, PO
     Route: 048
     Dates: start: 20100601, end: 20110404
  5. PREDNISONE TAB [Concomitant]
  6. REQUIP [Concomitant]
  7. ASPIRIN [Concomitant]
  8. PROTONIX [Concomitant]
  9. SIMVASTATIN [Concomitant]
  10. IRON (IRON) [Concomitant]

REACTIONS (2)
  - DISEASE PROGRESSION [None]
  - DRUG INTOLERANCE [None]
